FAERS Safety Report 5796452-5 (Version None)
Quarter: 2008Q3

REPORT INFORMATION
  Report Type: 
  Country: None (occurrence: None)
  Receive Date: 20080701
  Receipt Date: 20080619
  Transmission Date: 20090109
  Serious: Yes (Other)
  Sender: FDA-Public Use
  Company Number: PHHY2008DE11495

PATIENT
  Sex: Female

DRUGS (1)
  1. ZOMETA [Suspect]
     Dosage: 4 MG, EVERY 3 WEEKS
     Route: 042
     Dates: start: 20060401, end: 20080402

REACTIONS (2)
  - INFECTION [None]
  - OSTEONECROSIS [None]
